FAERS Safety Report 6290550-8 (Version None)
Quarter: 2009Q3

REPORT INFORMATION
  Report Type: 
  Country: None (occurrence: None)
  Receive Date: 20090730
  Receipt Date: 20090720
  Transmission Date: 20100115
  Serious: Yes (Death)
  Sender: FDA-Public Use
  Company Number: FR-ROCHE-639991

PATIENT
  Sex: Male
  Weight: 66 kg

DRUGS (4)
  1. PEGASYS [Suspect]
     Indication: HEPATITIS C
     Route: 058
     Dates: start: 20090210, end: 20090315
  2. PEGASYS [Suspect]
     Route: 058
     Dates: start: 20090315, end: 20090420
  3. COPEGUS [Suspect]
     Indication: HEPATITIS C
     Route: 048
     Dates: start: 20090210, end: 20090420
  4. ALDACTONE [Concomitant]
     Indication: DRUG USE FOR UNKNOWN INDICATION

REACTIONS (4)
  - ANAEMIA [None]
  - GASTROINTESTINAL HAEMORRHAGE [None]
  - OESOPHAGEAL VARICES HAEMORRHAGE [None]
  - THROMBOCYTOPENIA [None]
